FAERS Safety Report 6961391-0 (Version None)
Quarter: 2010Q3

REPORT INFORMATION
  Report Type: 
  Country: None (occurrence: None)
  Receive Date: 20100901
  Receipt Date: 20100805
  Transmission Date: 20110219
  Serious: Yes (Other)
  Sender: FDA-Public Use
  Company Number: PHEH2008US08271

PATIENT
  Sex: Female
  Weight: 56.236 kg

DRUGS (4)
  1. ZELNORM [Suspect]
     Indication: IRRITABLE BOWEL SYNDROME
     Dosage: UNK
     Route: 048
     Dates: start: 20030101, end: 20050101
  2. ZELNORM [Suspect]
     Indication: ABDOMINAL DISTENSION
  3. PROBIOTICS (MICROORGANISMS W/PROBIOTIC ACTION) [Concomitant]
     Indication: ABDOMINAL DISTENSION
     Route: 048
  4. HYDROCHLOROTHIAZIDE [Concomitant]
     Indication: HYPERTENSION
     Dosage: DAILY
     Route: 048

REACTIONS (13)
  - ABDOMINAL DISTENSION [None]
  - ABDOMINAL PAIN [None]
  - BREAST CANCER [None]
  - CYST [None]
  - DIARRHOEA [None]
  - DYSARTHRIA [None]
  - FACE OEDEMA [None]
  - ILEUS [None]
  - NODULE [None]
  - OEDEMA PERIPHERAL [None]
  - PALPITATIONS [None]
  - STOMACH MASS [None]
  - WEIGHT INCREASED [None]
